FAERS Safety Report 10580973 (Version 1)
Quarter: 2014Q4

REPORT INFORMATION
  Report Type: Spontaneous
  Country: US (occurrence: None)
  Receive Date: 20141112
  Receipt Date: 20141112
  Transmission Date: 20150529
  Serious: No
  Sender: FDA-Public Use
  Company Number: None

PATIENT
  Age: 12 Year
  Sex: Male

DRUGS (1)
  1. HUMIRA [Suspect]
     Active Substance: ADALIMUMAB
     Indication: CROHN^S DISEASE
     Dosage: 40 MG, EVERY ONE WEEK, SQ
     Route: 058
     Dates: start: 20141013

REACTIONS (4)
  - Emotional disorder [None]
  - Somnolence [None]
  - Irritability [None]
  - Crying [None]

NARRATIVE: CASE EVENT DATE: 20141013
